FAERS Safety Report 15898797 (Version 4)
Quarter: 2019Q2

REPORT INFORMATION
  Report Type: Report from Study
  Country: US (occurrence: US)
  Receive Date: 20190201
  Receipt Date: 20190401
  Transmission Date: 20190711
  Serious: Yes (Hospitalization, Other)
  Sender: FDA-Public Use
  Company Number: US-GILEAD-2019-0388123

PATIENT
  Age: 36 Year
  Sex: Female
  Weight: 79.8 kg

DRUGS (2)
  1. AMBRISENTAN [Suspect]
     Active Substance: AMBRISENTAN
     Indication: PULMONARY ARTERIAL HYPERTENSION
     Dosage: 10 MG, QD
     Route: 065
     Dates: start: 20171201
  2. ORENITRAM [Concomitant]
     Active Substance: TREPROSTINIL

REACTIONS (7)
  - Abdominal pain [Not Recovered/Not Resolved]
  - Weight decreased [Unknown]
  - Disability [Not Recovered/Not Resolved]
  - Eructation [Not Recovered/Not Resolved]
  - Vomiting [Unknown]
  - Stubbornness [Not Recovered/Not Resolved]
  - Vomiting [Recovered/Resolved]
